FAERS Safety Report 18650729 (Version 1)
Quarter: 2020Q4

REPORT INFORMATION
  Report Type: Spontaneous
  Country: AU (occurrence: AU)
  Receive Date: 20201223
  Receipt Date: 20201223
  Transmission Date: 20210114
  Serious: Yes (Hospitalization)
  Sender: FDA-Public Use
  Company Number: AU-JNJFOC-20201236984

PATIENT
  Sex: Male

DRUGS (9)
  1. VENLAFAXINE [Suspect]
     Active Substance: VENLAFAXINE HYDROCHLORIDE
     Indication: PRODUCT USED FOR UNKNOWN INDICATION
     Dosage: MAXIMUM INGESTION AS ESTIMATED FROM EMPTY PACKAGES: VENLAFAXINE 75MG X12 TABLETS
     Route: 048
  2. ESCITALOPRAM [Suspect]
     Active Substance: ESCITALOPRAM OXALATE
     Indication: PRODUCT USED FOR UNKNOWN INDICATION
     Dosage: MAXIMUM INGESTION AS ESTIMATED FROM EMPTY PACKAGES: ESCITALOPRAM 10MG X28 TABLETS
     Route: 048
  3. MOCLOBEMIDE [Suspect]
     Active Substance: MOCLOBEMIDE
     Indication: PRODUCT USED FOR UNKNOWN INDICATION
     Dosage: MAXIMUM INGESTION AS ESTIMATED FROM EMPTY PACKAGES: MOCLOBEMIDE 150MG X106 TABLETS
     Route: 048
  4. ESOMEPRAZOLE. [Suspect]
     Active Substance: ESOMEPRAZOLE MAGNESIUM
     Indication: PRODUCT USED FOR UNKNOWN INDICATION
     Dosage: MAXIMUM INGESTION AS ESTIMATED FROM EMPTY PACKAGES: ESOMEPRAZOLE 20MG X28 TABLETS
     Route: 048
  5. PARACETAMOL [Suspect]
     Active Substance: ACETAMINOPHEN
     Indication: PRODUCT USED FOR UNKNOWN INDICATION
     Dosage: MAXIMUM INGESTION AS ESTIMATED FROM EMPTY PACKAGES (MANUFACTURER UNSPECIFIED): PARACETAMOL 55G
     Route: 048
  6. VALSARTAN AND AMLODIPINE [AMLODIPINE;VALSARTAN] [Suspect]
     Active Substance: AMLODIPINE\VALSARTAN
     Indication: PRODUCT USED FOR UNKNOWN INDICATION
     Dosage: MAXIMUM INGESTION AS ESTIMATED FROM EMPTY PACKAGES: VALSARTAN/AMLODIPINE 32/5MG X28 TABLETS
     Route: 048
  7. FLUOXETINE [Suspect]
     Active Substance: FLUOXETINE HYDROCHLORIDE
     Indication: PRODUCT USED FOR UNKNOWN INDICATION
     Dosage: MAXIMUM INGESTION AS ESTIMATED FROM EMPTY PACKAGES: FLUOXETINE 20MG X28 TABLETS
     Route: 048
  8. XELJANZ [Suspect]
     Active Substance: TOFACITINIB CITRATE
     Indication: PRODUCT USED FOR UNKNOWN INDICATION
     Dosage: 5 MG X 56 TABLETS
     Route: 048
  9. TRAMADOL. [Suspect]
     Active Substance: TRAMADOL
     Indication: PRODUCT USED FOR UNKNOWN INDICATION
     Dosage: MAXIMUM INGESTION AS ESTIMATED FROM EMPTY PACKAGES: TRAMADOL SR 100MG X 10 TABLETS
     Route: 048

REACTIONS (5)
  - Intentional overdose [Unknown]
  - Acute kidney injury [Unknown]
  - Serotonin syndrome [Unknown]
  - Suicidal ideation [Unknown]
  - Metabolic acidosis [Unknown]
